FAERS Safety Report 18222080 (Version 4)
Quarter: 2020Q4

REPORT INFORMATION
  Report Type: Spontaneous
  Country: US (occurrence: US)
  Receive Date: 20200902
  Receipt Date: 20201019
  Transmission Date: 20210113
  Serious: Yes (Hospitalization, Other)
  Sender: FDA-Public Use
  Company Number: US-FERRINGPH-2020FE05853

PATIENT
  Age: 78 Year
  Sex: Male

DRUGS (6)
  1. DESMOPRESSIN [Suspect]
     Active Substance: DESMOPRESSIN
     Indication: PAIN
  2. CHOLECALCIFEROL [Concomitant]
     Active Substance: CHOLECALCIFEROL
     Indication: PRODUCT USED FOR UNKNOWN INDICATION
     Dosage: 1 TABLET BY MOUTH EVERY DAY
     Route: 065
     Dates: start: 20191115
  3. DESMOPRESSIN [Suspect]
     Active Substance: DESMOPRESSIN
     Indication: INSOMNIA
     Dosage: UNK/10 UG PER 0.1 ML/5 ML
     Route: 045
     Dates: start: 2019, end: 20200127
  4. MELATONIN [Concomitant]
     Active Substance: MELATONIN
     Indication: PRODUCT USED FOR UNKNOWN INDICATION
     Dosage: 2 TABLET BY MOUTH EACH NIGHT AT BEDTIME AS NEEDED AS NEEDED FOR INSOMNIA
     Route: 065
     Dates: start: 20180605
  5. CYANOCOBALAMIN. [Concomitant]
     Active Substance: CYANOCOBALAMIN
     Indication: PRODUCT USED FOR UNKNOWN INDICATION
     Dosage: 1 TABLET BY MOUTH EVERY DAY
     Dates: start: 20190520
  6. OMEPRAZOLE. [Concomitant]
     Active Substance: OMEPRAZOLE
     Indication: PRODUCT USED FOR UNKNOWN INDICATION
     Dosage: 1 CAPSULE BY MOUTH EVERY DAY
     Route: 065
     Dates: start: 20191115

REACTIONS (7)
  - Syncope [Unknown]
  - Dysstasia [Unknown]
  - Blood sodium decreased [Recovering/Resolving]
  - Recalled product administered [Unknown]
  - Product use in unapproved indication [Recovered/Resolved]
  - Decreased appetite [Unknown]
  - Asthenia [Unknown]

NARRATIVE: CASE EVENT DATE: 2019
